FAERS Safety Report 18091392 (Version 1)
Quarter: 2020Q3

REPORT INFORMATION
  Report Type: Spontaneous
  Country: US (occurrence: US)
  Receive Date: 20200729
  Receipt Date: 20200729
  Transmission Date: 20201103
  Serious: No
  Sender: FDA-Public Use
  Company Number: None

PATIENT
  Age: 87 Year
  Sex: Male
  Weight: 102.6 kg

DRUGS (7)
  1. METFORMIN 500MG [Concomitant]
     Active Substance: METFORMIN HYDROCHLORIDE
     Dates: start: 20120713
  2. GABAPENTIN 600MG [Concomitant]
     Active Substance: GABAPENTIN
     Dates: start: 20120713
  3. PIOGLITAZONE 45MG [Concomitant]
     Active Substance: PIOGLITAZONE
     Dates: start: 20120713
  4. ATORVASTATIN 20MG [Concomitant]
     Active Substance: ATORVASTATIN
     Dates: start: 20120713
  5. ELIGARD [Concomitant]
     Active Substance: LEUPROLIDE ACETATE
     Dates: start: 20170629
  6. XTANDI [Suspect]
     Active Substance: ENZALUTAMIDE
     Indication: HORMONE-REFRACTORY PROSTATE CANCER
     Route: 048
     Dates: start: 20200715, end: 20200727
  7. ENALAPRIL 10MG [Concomitant]
     Active Substance: ENALAPRIL
     Dates: start: 20120713

REACTIONS (3)
  - Oesophageal irritation [None]
  - Product solubility abnormal [None]
  - Burning sensation [None]

NARRATIVE: CASE EVENT DATE: 20200726
